FAERS Safety Report 23290876 (Version 1)
Quarter: 2023Q4

REPORT INFORMATION
  Report Type: Spontaneous
  Country: US (occurrence: US)
  Receive Date: 20231213
  Receipt Date: 20231213
  Transmission Date: 20240109
  Serious: No
  Sender: FDA-Public Use
  Company Number: US-ALVOGEN-2022088565

PATIENT
  Sex: Female

DRUGS (1)
  1. FENTANYL TRANSDERMAL SYSTEM [Suspect]
     Active Substance: FENTANYL
     Indication: Product used for unknown indication
     Dosage: EXPIRATION DATE: 31-MAR-2025.?75 MCG/HOUR
     Dates: start: 2022

REACTIONS (2)
  - Device malfunction [Unknown]
  - Device adhesion issue [Unknown]
